FAERS Safety Report 6021378-1 (Version None)
Quarter: 2008Q4

REPORT INFORMATION
  Report Type: 
  Country: None (occurrence: None)
  Receive Date: 20081229
  Receipt Date: 20081215
  Transmission Date: 20090506
  Serious: Yes (Hospitalization)
  Sender: FDA-Public Use
  Company Number: B0550369A

PATIENT
  Age: 18 Year
  Sex: Female

DRUGS (4)
  1. CEFUROXIME [Suspect]
     Indication: NASOPHARYNGITIS
     Dosage: 250MG TWICE PER DAY
     Route: 048
     Dates: start: 20080926, end: 20081001
  2. NIFLURIL [Suspect]
     Indication: NASOPHARYNGITIS
     Dosage: 500MG TWICE PER DAY
     Route: 048
     Dates: start: 20080926, end: 20080928
  3. TOPLEXIL [Suspect]
     Indication: DRUG USE FOR UNKNOWN INDICATION
     Route: 048
     Dates: start: 20080926, end: 20081001
  4. CONTRACEPTIVE PILL [Concomitant]
     Indication: CONTRACEPTION
     Route: 048

REACTIONS (5)
  - ABDOMINAL PAIN [None]
  - CLOSTRIDIAL INFECTION [None]
  - DIARRHOEA [None]
  - RENAL FAILURE ACUTE [None]
  - VOMITING [None]
